FAERS Safety Report 21174266 (Version 1)
Quarter: 2022Q3

REPORT INFORMATION
  Report Type: Spontaneous
  Country: US (occurrence: US)
  Receive Date: 20220804
  Receipt Date: 20220804
  Transmission Date: 20221027
  Serious: Yes (Other)
  Sender: FDA-Public Use
  Company Number: US-HORIZON THERAPEUTICS-HZN-2022-005459

PATIENT

DRUGS (1)
  1. RAYOS [Suspect]
     Active Substance: PREDNISONE
     Indication: Sarcoidosis
     Dosage: 1ST DOSE
     Route: 048

REACTIONS (3)
  - Ocular hypertension [Unknown]
  - Drug intolerance [Recovered/Resolved]
  - Weight increased [Unknown]
